FAERS Safety Report 4514582-2 (Version None)
Quarter: 2004Q4

REPORT INFORMATION
  Report Type: 
  Country: None (occurrence: None)
  Receive Date: 20040927
  Receipt Date: 20040525
  Transmission Date: 20050328
  Serious: No
  Sender: FDA-Public Use
  Company Number: US077908

PATIENT

DRUGS (1)
  1. NEULASTA [Suspect]

REACTIONS (1)
  - HYPERSENSITIVITY [None]
